FAERS Safety Report 25123427 (Version 2)
Quarter: 2025Q3

REPORT INFORMATION
  Report Type: Report from Study
  Country: RU (occurrence: RU)
  Receive Date: 20250326
  Receipt Date: 20250802
  Transmission Date: 20251021
  Serious: Yes (Other)
  Sender: ALEXION PHARMACEUTICALS
  Company Number: RU-AstraZeneca-CH-00829973A

PATIENT
  Age: 8 Year
  Sex: Female

DRUGS (1)
  1. SELUMETINIB [Suspect]
     Active Substance: SELUMETINIB

REACTIONS (5)
  - Eczema nummular [Not Recovered/Not Resolved]
  - Dry skin [Unknown]
  - Eczema [Unknown]
  - Rash papular [Unknown]
  - Rash erythematous [Unknown]

NARRATIVE: CASE EVENT DATE: 20231101
